FAERS Safety Report 24797713 (Version 2)
Quarter: 2025Q1

REPORT INFORMATION
  Report Type: Spontaneous
  Country: US (occurrence: US)
  Receive Date: 20250102
  Receipt Date: 20250108
  Transmission Date: 20250409
  Serious: No
  Sender: ROCHE
  Company Number: US-ROCHE-10000167073

PATIENT
  Sex: Female
  Weight: 69 kg

DRUGS (19)
  1. KADCYLA [Suspect]
     Active Substance: ADO-TRASTUZUMAB EMTANSINE
     Indication: Product used for unknown indication
     Route: 065
  2. PERJETA [Suspect]
     Active Substance: PERTUZUMAB
     Indication: Breast cancer
     Route: 065
  3. PERJETA [Suspect]
     Active Substance: PERTUZUMAB
     Indication: Oestrogen receptor assay negative
  4. SODIUM CHLORIDE [Concomitant]
     Active Substance: SODIUM CHLORIDE
     Indication: Breast cancer
  5. SODIUM CHLORIDE [Concomitant]
     Active Substance: SODIUM CHLORIDE
     Indication: Oestrogen receptor assay negative
  6. TYLENOL [Concomitant]
     Active Substance: ACETAMINOPHEN
     Indication: Breast cancer
  7. TYLENOL [Concomitant]
     Active Substance: ACETAMINOPHEN
     Indication: Oestrogen receptor assay negative
  8. CARBOPLATIN [Concomitant]
     Active Substance: CARBOPLATIN
     Indication: Breast cancer
     Route: 042
  9. CARBOPLATIN [Concomitant]
     Active Substance: CARBOPLATIN
     Indication: Oestrogen receptor assay negative
  10. DECADRON [Concomitant]
     Active Substance: DEXAMETHASONE
     Indication: Breast cancer
  11. DECADRON [Concomitant]
     Active Substance: DEXAMETHASONE
     Indication: Oestrogen receptor assay negative
  12. DOCETAXEL [Concomitant]
     Active Substance: DOCETAXEL
     Indication: Breast cancer
     Route: 042
  13. DOCETAXEL [Concomitant]
     Active Substance: DOCETAXEL
     Indication: Oestrogen receptor assay negative
  14. KANJINTI [Concomitant]
     Active Substance: TRASTUZUMAB-ANNS
     Indication: Breast cancer
  15. KANJINTI [Concomitant]
     Active Substance: TRASTUZUMAB-ANNS
     Indication: Oestrogen receptor assay negative
  16. EMEND [Concomitant]
     Active Substance: APREPITANT
     Indication: Breast cancer
  17. EMEND [Concomitant]
     Active Substance: APREPITANT
     Indication: Oestrogen receptor assay negative
  18. ZOFRAN [Concomitant]
     Active Substance: ONDANSETRON HYDROCHLORIDE
     Indication: Breast cancer
  19. ZOFRAN [Concomitant]
     Active Substance: ONDANSETRON HYDROCHLORIDE
     Indication: Oestrogen receptor assay negative

REACTIONS (10)
  - Decreased appetite [Unknown]
  - Fatigue [Unknown]
  - Diarrhoea [Unknown]
  - Dysgeusia [Unknown]
  - Alopecia [Unknown]
  - Onychoclasis [Unknown]
  - Onycholysis [Unknown]
  - Weight decreased [Unknown]
  - Stomatitis [Unknown]
  - Neuropathy peripheral [Unknown]
